FAERS Safety Report 6888583-3 (Version None)
Quarter: 2010Q3

REPORT INFORMATION
  Report Type: 
  Country: None (occurrence: None)
  Receive Date: 20100730
  Receipt Date: 20070929
  Transmission Date: 20110219
  Serious: No
  Sender: FDA-Public Use
  Company Number: US-PFIZER INC-2007072217

PATIENT
  Sex: Male
  Weight: 73.48 kg

DRUGS (4)
  1. LIPITOR [Suspect]
     Indication: HYPERLIPIDAEMIA
     Dosage: DAILY: EVERY DAY
     Dates: end: 20070820
  2. ACETYLSALICYLIC ACID SRT [Concomitant]
  3. MULTI-VITAMINS [Concomitant]
  4. LISINOPRIL AND HYDROCHLOROTHIAZIDE [Concomitant]

REACTIONS (2)
  - HIGH DENSITY LIPOPROTEIN DECREASED [None]
  - LOW DENSITY LIPOPROTEIN DECREASED [None]
